FAERS Safety Report 17051392 (Version 1)
Quarter: 2019Q4

REPORT INFORMATION
  Report Type: Other
  Country: GB (occurrence: GB)
  Receive Date: 20191120
  Receipt Date: 20191120
  Transmission Date: 20200122
  Serious: Yes (Other)
  Sender: FDA-Public Use
  Company Number: GB-CELLTRION INC.-2019GB026429

PATIENT

DRUGS (1)
  1. RITUXIMAB (UNKNOWN) [Suspect]
     Active Substance: RITUXIMAB
     Indication: IMMUNE THROMBOCYTOPENIC PURPURA
     Dosage: UNK., FOR QUITE A FEW YEARS (ROUGHLY EVERY 6 MONTHS WHEN SHE RELAPSES)
     Route: 065

REACTIONS (4)
  - Product use in unapproved indication [Unknown]
  - Learning disorder [Unknown]
  - Disease recurrence [Unknown]
  - Product use issue [Unknown]
